FAERS Safety Report 8977504 (Version 1)
Quarter: 2012Q4

REPORT INFORMATION
  Report Type: 
  Country: US (occurrence: US)
  Receive Date: 20121220
  Receipt Date: 20121220
  Transmission Date: 20130627
  Serious: Yes (Hospitalization)
  Sender: FDA-Public Use
  Company Number: US-PFIZER INC-2012316721

PATIENT
  Age: 72 Year
  Sex: Female

DRUGS (1)
  1. REVATIO [Suspect]
     Indication: COPD
     Dosage: UNK
     Dates: start: 20120501, end: 20120701

REACTIONS (2)
  - Dyspnoea [Unknown]
  - Off label use [Recovered/Resolved]
